FAERS Safety Report 16887603 (Version 2)
Quarter: 2020Q1

REPORT INFORMATION
  Report Type: Spontaneous
  Country: US (occurrence: US)
  Receive Date: 20191005
  Receipt Date: 20200316
  Transmission Date: 20200409
  Serious: No
  Sender: FDA-Public Use
  Company Number: US-TEVA-2019-US-1117260

PATIENT
  Sex: Female

DRUGS (1)
  1. PENICILLIN V POTASSIUM. [Suspect]
     Active Substance: PENICILLIN V POTASSIUM
     Route: 065

REACTIONS (3)
  - Drug hypersensitivity [Unknown]
  - Rash [Recovered/Resolved]
  - Urticaria [Recovered/Resolved]

NARRATIVE: CASE EVENT DATE: 1980
